FAERS Safety Report 5245413-3 (Version None)
Quarter: 2007Q1

REPORT INFORMATION
  Report Type: 
  Country: None (occurrence: None)
  Receive Date: 20070223
  Receipt Date: 20070212
  Transmission Date: 20070707
  Serious: Yes (Life-Threatening, Hospitalization)
  Sender: FDA-Public Use
  Company Number: US-ELI_LILLY_AND_COMPANY-US200612001037

PATIENT
  Age: 53 Year
  Sex: Male
  Weight: 86.167 kg

DRUGS (3)
  1. CYMBALTA [Suspect]
     Indication: DEPRESSION
     Dosage: UNK, DAILY (1/D)
     Route: 048
     Dates: start: 20061016, end: 20061030
  2. RESTORIL [Concomitant]
     Dosage: 15 MG, EACH EVENING
     Dates: start: 20061101
  3. REMERON [Concomitant]
     Dosage: 15 MG, UNK
     Dates: start: 20061101

REACTIONS (4)
  - HALLUCINATION, AUDITORY [None]
  - PSYCHOTIC DISORDER [None]
  - SELF INJURIOUS BEHAVIOUR [None]
  - SUICIDE ATTEMPT [None]
